FAERS Safety Report 9844876 (Version 2)
Quarter: 2014Q1

REPORT INFORMATION
  Report Type: Spontaneous
  Country: AT (occurrence: AT)
  Receive Date: 20140127
  Receipt Date: 20140211
  Transmission Date: 20141002
  Serious: Yes (Death)
  Sender: FDA-Public Use
  Company Number: AT-ACTELION-A-CH2014-94060

PATIENT
  Age: 81 Year
  Sex: Female

DRUGS (7)
  1. TRACLEER [Suspect]
     Indication: PULMONARY ARTERIAL HYPERTENSION
     Dosage: 125 MG, UNK
     Route: 048
  2. THROMBO AS [Concomitant]
     Dosage: 100 MG, UNK
     Dates: start: 201205
  3. LASIX [Concomitant]
     Dosage: 30 MG, BID
     Dates: start: 2008
  4. MACROGOL [Concomitant]
     Dosage: .5 UNK, QD
  5. SPIRONO [Concomitant]
     Dosage: 50 MG, QD
  6. DAFLON [Concomitant]
     Dosage: 500 MG, BID
  7. SIMVASTATIN [Concomitant]
     Dosage: 40 MG, QD

REACTIONS (1)
  - Death [Fatal]
